FAERS Safety Report 9450983 (Version 1)
Quarter: 2013Q3

REPORT INFORMATION
  Report Type: Spontaneous
  Country: GB (occurrence: None)
  Receive Date: 20130807
  Receipt Date: 20130807
  Transmission Date: 20140515
  Serious: Yes (Hospitalization, Other)
  Sender: FDA-Public Use
  Company Number: AUR-APL-2013-06296

PATIENT
  Age: 86 Year
  Sex: Male

DRUGS (9)
  1. AMOXICILLIN (AMOXICILLIN) [Suspect]
     Dosage: 750 MG (250 MG, 3 IN 1 D),ORAL
     Route: 048
     Dates: start: 20110418
  2. GTN (GLYCERYL TRINITRATE) [Concomitant]
  3. N ICORANDIL (NICORANDIL) [Concomitant]
  4. PARACETAMOL (PARACETAMOL) [Concomitant]
  5. PREDNISOLONE (PREDNISOLONE) [Concomitant]
  6. RAMIPRIL (RAMIPRIL) [Concomitant]
  7. SENNA (SENNA ALEXANDRINA) [Concomitant]
  8. SIMVASTATIN (SIMVASTATIN) [Concomitant]
  9. WARAFRIN (WARFARIN) [Concomitant]

REACTIONS (3)
  - Pneumonia [None]
  - Treatment failure [None]
  - Prescribed underdose [None]
